FAERS Safety Report 9664199 (Version 1)
Quarter: 2013Q4

REPORT INFORMATION
  Report Type: Spontaneous
  Country: US (occurrence: None)
  Receive Date: 20131030
  Receipt Date: 20131030
  Transmission Date: 20140711
  Serious: Yes (Hospitalization)
  Sender: FDA-Public Use
  Company Number: None

PATIENT
  Age: 50 Year
  Sex: Female
  Weight: 91 kg

DRUGS (13)
  1. HYPERTONIC SALINE SOLUTION [Suspect]
     Indication: INTRACRANIAL PRESSURE INCREASED
     Dosage: 5%  PRN/AS NEEDED  INTRAVENOUS
     Route: 042
     Dates: start: 20110724, end: 20110725
  2. HEPARIN [Concomitant]
  3. AMPICILLIN [Concomitant]
  4. PERIDEX [Concomitant]
  5. COLACE [Concomitant]
  6. INSULIN [Concomitant]
  7. LANSOPRAZOLE [Concomitant]
  8. MANNITOL [Concomitant]
  9. PENTOBARBITAL [Concomitant]
  10. SENNA [Concomitant]
  11. FENTANYL [Concomitant]
  12. PANCURONIUM BROMIDE [Concomitant]
  13. NOREPINEPHRINE [Concomitant]

REACTIONS (1)
  - Blood sodium increased [None]
